APPROVED DRUG PRODUCT: THEOCLEAR L.A.-260
Active Ingredient: THEOPHYLLINE
Strength: 260MG
Dosage Form/Route: CAPSULE, EXTENDED RELEASE;ORAL
Application: A086569 | Product #002
Applicant: SCHWARZ PHARMA INC
Approved: May 27, 1982 | RLD: No | RS: No | Type: DISCN